APPROVED DRUG PRODUCT: INDOMETHACIN
Active Ingredient: INDOMETHACIN
Strength: 50MG
Dosage Form/Route: CAPSULE;ORAL
Application: A072997 | Product #001
Applicant: WATSON LABORATORIES INC
Approved: Jul 31, 1991 | RLD: No | RS: No | Type: DISCN